FAERS Safety Report 9859774 (Version 2)
Quarter: 2014Q1

REPORT INFORMATION
  Report Type: Spontaneous
  Country: US (occurrence: US)
  Receive Date: 20140131
  Receipt Date: 20140131
  Transmission Date: 20141002
  Serious: Yes (Hospitalization)
  Sender: FDA-Public Use
  Company Number: US-B.I. PHARMACEUTICALS,INC./RIDGEFIELD-2013-BI-42644BP

PATIENT
  Sex: Male
  Weight: 72.57 kg

DRUGS (11)
  1. PRADAXA [Suspect]
     Indication: ATRIAL FLUTTER
     Dosage: 150 MG
     Dates: start: 20110627, end: 20130730
  2. SLOW IRON [Concomitant]
     Dosage: 320 MG
  3. CITALOPRAM [Concomitant]
     Dosage: 20 MG
  4. MULTAQ [Concomitant]
     Dosage: 800 MG
  5. FUROSEMIDE [Concomitant]
     Dosage: 160 MG
  6. ZAROXOLYN [Concomitant]
     Dosage: 2.5 MG
  7. POTASSIUM CHLORIDE CRYSTALS ER [Concomitant]
     Dosage: 100 MEQ
  8. COREG [Concomitant]
     Dosage: 12.5 MG
  9. ASPIRIN [Concomitant]
     Dosage: 162 MG
  10. VITAMIN D [Concomitant]
     Dosage: 2000 U
  11. HYDROCODONE AND ACETAMINOPHEN [Concomitant]
     Indication: PAIN

REACTIONS (2)
  - Gastrointestinal haemorrhage [Unknown]
  - Iron deficiency anaemia [Unknown]
